FAERS Safety Report 4833746-1 (Version None)
Quarter: 2005Q4

REPORT INFORMATION
  Report Type: 
  Country: None (occurrence: None)
  Receive Date: 20051116
  Receipt Date: 20051116
  Transmission Date: 20060501
  Serious: Yes (Hospitalization, Other)
  Sender: FDA-Public Use
  Company Number: None

PATIENT
  Sex: Female
  Weight: 84.54 kg

DRUGS (10)
  1. DOXORUBICIN [Suspect]
     Indication: ENDOMETRIAL CANCER
     Dosage: SEE IMAGE
     Dates: start: 20051013, end: 20051013
  2. CISPLATIN [Suspect]
     Dosage: SEE IMAGE
     Dates: start: 20051013, end: 20051013
  3. TAXOL [Suspect]
     Dosage: SEE IMAGE
     Dates: start: 20051014, end: 20051014
  4. TAXOL [Suspect]
     Dosage: SEE IMAGE
     Dates: start: 20051013
  5. G-CSF [Suspect]
     Dosage: SEE IMAGE
     Dates: start: 20051015, end: 20051015
  6. G-CSF [Suspect]
     Dosage: SEE IMAGE
     Dates: start: 20051013
  7. EMEND [Concomitant]
  8. MIRALAX [Concomitant]
  9. ZOFRAN [Concomitant]
  10. DEXAMETHASONE [Concomitant]

REACTIONS (1)
  - CATHETER RELATED INFECTION [None]
